FAERS Safety Report 8175921-7 (Version None)
Quarter: 2012Q1

REPORT INFORMATION
  Report Type: 
  Country: None (occurrence: None)
  Receive Date: 20120301
  Receipt Date: 20120227
  Transmission Date: 20120608
  Serious: No
  Sender: FDA-Public Use
  Company Number: US-PFIZER INC-2012052302

PATIENT
  Sex: Female
  Weight: 73.469 kg

DRUGS (4)
  1. LIOTHYRONINE SODIUM [Suspect]
     Indication: FATIGUE
     Dosage: 20 MG, DAILY
     Route: 048
     Dates: start: 20120101, end: 20120101
  2. SYNTHROID [Concomitant]
     Indication: THYROID DISORDER
     Dosage: 50 UG, DAILY
  3. LIOTHYRONINE SODIUM [Suspect]
     Indication: THYROID DISORDER
     Dosage: 20 MG, DAILY
     Route: 048
     Dates: start: 20110101
  4. SPIRONOLACTONE [Concomitant]
     Dosage: 50 MG, DAILY

REACTIONS (4)
  - ARTHRITIS [None]
  - PAIN IN EXTREMITY [None]
  - SCIATICA [None]
  - GAIT DISTURBANCE [None]
